FAERS Safety Report 4293755-0 (Version None)
Quarter: 2004Q1

REPORT INFORMATION
  Report Type: 
  Country: None (occurrence: None)
  Receive Date: 20040212
  Receipt Date: 20040123
  Transmission Date: 20041129
  Serious: Yes (Disabling)
  Sender: FDA-Public Use
  Company Number: DE-GLAXOSMITHKLINE-D0042974A

PATIENT
  Age: 47 Year
  Sex: Male
  Weight: 100 kg

DRUGS (2)
  1. SEROXAT [Suspect]
     Indication: DEPRESSION
     Dosage: 20MG UNKNOWN
     Route: 048
     Dates: start: 20031101
  2. MADOPAR [Concomitant]
     Indication: RESTLESS LEGS SYNDROME
     Dosage: 125MG PER DAY
     Route: 048

REACTIONS (2)
  - IMPAIRED WORK ABILITY [None]
  - PANIC ATTACK [None]
